FAERS Safety Report 11253006 (Version 1)
Quarter: 2015Q3

REPORT INFORMATION
  Report Type: Spontaneous
  Country: US (occurrence: None)
  Receive Date: 20150707
  Receipt Date: 20150707
  Transmission Date: 20151125
  Serious: Yes (Other)
  Sender: FDA-Public Use
  Company Number: 2015-10964

PATIENT
  Age: 73 Year
  Sex: Male
  Weight: 83.9 kg

DRUGS (5)
  1. LEVOTHYROXINE. [Concomitant]
     Active Substance: LEVOTHYROXINE
  2. THERAPEUTIC MULTIVITAMIN (ASCORBIC ACID, CALCIUM PANTOTHENATE, CYANOCOBALAMIN, ERGOCALCIFEROL, NICOTINAMIDE, PYRIDOXINE HYDROCHLORIDE, RETINOL, RIBOFLAVIN, THIAMIN HYDROCHLORIDE) [Concomitant]
  3. VITAMIN B (VITAMIN B COMPLEX) [Concomitant]
  4. EYLEA [Suspect]
     Active Substance: AFLIBERCEPT
     Indication: RETINAL VEIN OCCLUSION
     Dosage: UNK, OD, ONCE EVERY 7 WEEKS, INTRAOCULAR
     Route: 031
     Dates: start: 201501
  5. EFFEXOR [Concomitant]
     Active Substance: VENLAFAXINE HYDROCHLORIDE

REACTIONS (3)
  - Rheumatoid arthritis [None]
  - Peripheral swelling [None]
  - Myalgia [None]

NARRATIVE: CASE EVENT DATE: 20150611
